FAERS Safety Report 8161464-3 (Version None)
Quarter: 2012Q1

REPORT INFORMATION
  Report Type: 
  Country: None (occurrence: None)
  Receive Date: 20120224
  Receipt Date: 20110118
  Transmission Date: 20120608
  Serious: No
  Sender: FDA-Public Use
  Company Number: US-MYLANLABS-2011S1001325

PATIENT
  Sex: Female

DRUGS (1)
  1. ALPRAZOLAM [Suspect]
     Indication: ANXIETY
     Route: 048

REACTIONS (4)
  - RASH [None]
  - ABDOMINAL PAIN UPPER [None]
  - REACTION TO DRUG EXCIPIENTS [None]
  - PRURITUS [None]
